FAERS Safety Report 9813055 (Version 1)
Quarter: 2014Q1

REPORT INFORMATION
  Report Type: Spontaneous
  Country: US (occurrence: US)
  Receive Date: 20140113
  Receipt Date: 20140113
  Transmission Date: 20141002
  Serious: Yes (Death)
  Sender: FDA-Public Use
  Company Number: US-PFIZER INC-2014005173

PATIENT
  Age: 78 Year
  Sex: Female

DRUGS (5)
  1. OXYCODONE HYDROCHLORIDE [Suspect]
     Route: 048
  2. ACETAMINOPHEN W/CODEINE [Suspect]
     Route: 048
  3. LISINOPRIL [Suspect]
     Route: 048
  4. TIOTROPIUM [Suspect]
     Route: 048
  5. CYCLOBENZAPRINE [Suspect]
     Route: 048

REACTIONS (1)
  - Completed suicide [Fatal]
